FAERS Safety Report 23242277 (Version 1)
Quarter: 2023Q4

REPORT INFORMATION
  Report Type: Spontaneous
  Country: US (occurrence: US)
  Receive Date: 20231129
  Receipt Date: 20231129
  Transmission Date: 20240110
  Serious: Yes (Hospitalization)
  Sender: FDA-Public Use
  Company Number: US-ELI_LILLY_AND_COMPANY-US202311013537

PATIENT
  Age: 62 Year
  Sex: Male

DRUGS (3)
  1. MOUNJARO [Suspect]
     Active Substance: TIRZEPATIDE
     Indication: Product used for unknown indication
     Dosage: UNK, UNKNOWN
     Route: 065
     Dates: end: 20231115
  2. ORGOVYX [Suspect]
     Active Substance: RELUGOLIX
     Indication: Prostate cancer
     Dosage: 120 MG, DAILY
     Route: 048
     Dates: start: 20230720
  3. ORGOVYX [Suspect]
     Active Substance: RELUGOLIX
     Dosage: UNK, UNKNOWN
     Route: 065

REACTIONS (4)
  - Hypertension [Not Recovered/Not Resolved]
  - Hypotonia [Unknown]
  - Blood testosterone decreased [Unknown]
  - Fatigue [Unknown]

NARRATIVE: CASE EVENT DATE: 20230901
